FAERS Safety Report 9357621 (Version 1)
Quarter: 2013Q2

REPORT INFORMATION
  Report Type: Spontaneous
  Country: GB (occurrence: GB)
  Receive Date: 20130620
  Receipt Date: 20130620
  Transmission Date: 20140414
  Serious: Yes (Hospitalization, Other)
  Sender: FDA-Public Use
  Company Number: GB-CELGENEUS-167-21880-13061360

PATIENT
  Age: 81 Year
  Sex: Male

DRUGS (7)
  1. REVLIMID [Suspect]
     Indication: PLASMA CELL MYELOMA
     Route: 048
     Dates: start: 201209
  2. REVLIMID [Suspect]
     Route: 048
     Dates: start: 20130218, end: 201303
  3. THALIDOMIDE [Suspect]
     Indication: PLASMA CELL MYELOMA
     Dosage: NOT PROVIDED
     Route: 048
     Dates: start: 200907, end: 201002
  4. CODEINE [Concomitant]
     Indication: PRODUCT USED FOR UNKNOWN INDICATION
     Route: 065
  5. DIABETIC MEDICATIONS [Concomitant]
     Indication: DIABETES MELLITUS
     Route: 065
  6. DEXAMETHASONE [Concomitant]
     Indication: PLASMA CELL MYELOMA
     Route: 065
     Dates: start: 201209
  7. DEXAMETHASONE [Concomitant]
     Route: 065
     Dates: start: 20130218

REACTIONS (4)
  - Lung squamous cell carcinoma stage III [Not Recovered/Not Resolved]
  - Pneumonia [Unknown]
  - Streptococcal bacteraemia [Unknown]
  - Pneumonia [Unknown]
